FAERS Safety Report 4286836-9 (Version None)
Quarter: 2004Q1

REPORT INFORMATION
  Report Type: 
  Country: None (occurrence: None)
  Receive Date: 20040206
  Receipt Date: 20040127
  Transmission Date: 20041129
  Serious: Yes (Hospitalization)
  Sender: FDA-Public Use
  Company Number: PHEH2004US01218

PATIENT
  Age: 65 Year
  Sex: Female

DRUGS (7)
  1. ZOMETA [Suspect]
     Indication: MULTIPLE MYELOMA
     Dosage: EVERY MONTH
     Route: 042
     Dates: start: 20030515
  2. TORSEMIDE [Concomitant]
  3. ATENOLOL [Concomitant]
  4. A.A.S. [Concomitant]
  5. ZETIA [Concomitant]
  6. LIPITOR [Concomitant]
  7. ZOCOR [Concomitant]

REACTIONS (8)
  - BLOOD CREATININE INCREASED [None]
  - BLOOD UREA INCREASED [None]
  - INFECTION [None]
  - PROTEIN URINE [None]
  - PYREXIA [None]
  - RENAL DISORDER [None]
  - SEPSIS [None]
  - VIRAL INFECTION [None]
